FAERS Safety Report 9371432 (Version 1)
Quarter: 2013Q2

REPORT INFORMATION
  Report Type: Spontaneous
  Country: US (occurrence: US)
  Receive Date: 20130627
  Receipt Date: 20130627
  Transmission Date: 20140414
  Serious: Yes (Other)
  Sender: FDA-Public Use
  Company Number: US-JNJFOC-20130503887

PATIENT
  Age: 46 Year
  Sex: Male
  Weight: 95.71 kg

DRUGS (2)
  1. INVOKANA [Suspect]
     Indication: TYPE 2 DIABETES MELLITUS
     Route: 048
     Dates: start: 20130530, end: 20130603
  2. INVOKANA [Suspect]
     Indication: TYPE 2 DIABETES MELLITUS
     Route: 048
     Dates: start: 20130604, end: 20130611

REACTIONS (3)
  - Dizziness [Recovered/Resolved]
  - Penile infection [Unknown]
  - Dysuria [Unknown]
